FAERS Safety Report 9052090 (Version 3)
Quarter: 2015Q3

REPORT INFORMATION
  Report Type: Report from Study
  Country: US (occurrence: US)
  Receive Date: 20130206
  Receipt Date: 20150710
  Transmission Date: 20151125
  Serious: Yes (Hospitalization)
  Sender: FDA-Public Use
  Company Number: US-BIOGENIDEC-2013BI009443

PATIENT
  Age: 53 Year
  Sex: Male

DRUGS (1)
  1. AVONEX [Suspect]
     Active Substance: INTERFERON BETA-1A
     Indication: MULTIPLE SCLEROSIS
     Route: 030

REACTIONS (10)
  - Skin ulcer [Not Recovered/Not Resolved]
  - Exostosis [Not Recovered/Not Resolved]
  - Upper limb fracture [Recovered/Resolved]
  - Transient ischaemic attack [Recovered/Resolved]
  - Fall [Recovered/Resolved]
  - Laceration [Recovered/Resolved]
  - Muscle twitching [Not Recovered/Not Resolved]
  - Myocardial infarction [Recovered/Resolved]
  - Tendon disorder [Recovered/Resolved]
  - Multiple fractures [Unknown]

NARRATIVE: CASE EVENT DATE: 2000
